FAERS Safety Report 4493160-8 (Version None)
Quarter: 2004Q4

REPORT INFORMATION
  Report Type: 
  Country: None (occurrence: None)
  Receive Date: 20041104
  Receipt Date: 20041008
  Transmission Date: 20050328
  Serious: Yes (Other)
  Sender: FDA-Public Use
  Company Number: PHNR2004AU01481

PATIENT
  Age: 64 Year
  Sex: Female

DRUGS (1)
  1. MIOCHOL [Suspect]
     Dosage: 1 VIAL, ONCE/SINGLE
     Route: 031
     Dates: start: 20040419, end: 20040419

REACTIONS (2)
  - CORNEAL OEDEMA [None]
  - LENTICULAR OPACITIES [None]
